FAERS Safety Report 14767780 (Version 1)
Quarter: 2018Q2

REPORT INFORMATION
  Report Type: Spontaneous
  Country: DK (occurrence: DK)
  Receive Date: 20180417
  Receipt Date: 20180417
  Transmission Date: 20180711
  Serious: Yes (Hospitalization)
  Sender: FDA-Public Use
  Company Number: DK-B.I. PHARMACEUTICALS,INC./RIDGEFIELD-2018-12-001354

PATIENT
  Age: 72 Year
  Sex: Female

DRUGS (10)
  1. HEXALACTON [Concomitant]
     Indication: DIURETIC THERAPY
     Dosage: STRENGTH: 25 MG.
     Route: 048
     Dates: start: 20130208
  2. PANODIL [Concomitant]
     Active Substance: ACETAMINOPHEN
     Indication: PAIN
     Dosage: 1 TABLET WHEN NEEDED. MAXIMUM 4 TIMES A DAY. STRENGTH: 500 MG; AS REQUIRED
     Route: 048
     Dates: start: 20160720
  3. ATENOLOL. [Concomitant]
     Active Substance: ATENOLOL
     Indication: HYPERTENSION
     Route: 048
     Dates: start: 20130208
  4. AMLODIPINE [Concomitant]
     Active Substance: AMLODIPINE BESYLATE
     Indication: HYPERTENSION
     Route: 048
     Dates: start: 20130208
  5. METFORMIN [Concomitant]
     Active Substance: METFORMIN HYDROCHLORIDE
     Indication: DIABETES MELLITUS
     Route: 048
     Dates: start: 20130821
  6. JARDIANCE [Suspect]
     Active Substance: EMPAGLIFLOZIN
     Indication: TYPE 2 DIABETES MELLITUS
     Route: 048
     Dates: start: 20160626, end: 20180407
  7. THEO-DUR [Concomitant]
     Active Substance: THEOPHYLLINE ANHYDROUS
     Indication: ASTHMA
     Route: 048
     Dates: start: 20140303
  8. KALEORID [Concomitant]
     Active Substance: POTASSIUM CHLORIDE
     Indication: MINERAL SUPPLEMENTATION
     Route: 048
     Dates: start: 20130821
  9. PREDNISOLON [Concomitant]
     Active Substance: PREDNISOLONE
     Indication: ADRENOCORTICAL STEROID THERAPY
     Route: 048
     Dates: start: 20180404
  10. PRIMCILLIN [Concomitant]
     Active Substance: PENICILLIN V POTASSIUM
     Indication: INFECTION
     Route: 048
     Dates: start: 20170323

REACTIONS (2)
  - Ketoacidosis [Recovering/Resolving]
  - Dyspnoea [Recovering/Resolving]

NARRATIVE: CASE EVENT DATE: 201804
